FAERS Safety Report 6414835-7 (Version None)
Quarter: 2009Q4

REPORT INFORMATION
  Report Type: 
  Country: None (occurrence: None)
  Receive Date: 20091026
  Receipt Date: 20090109
  Transmission Date: 20100525
  Serious: No
  Sender: FDA-Public Use
  Company Number: US-ABBOTT-09P-163-0496623-00

PATIENT
  Sex: Female
  Weight: 49.94 kg

DRUGS (1)
  1. LUPRON DEPOT [Suspect]
     Indication: ENDOMETRIOSIS
     Route: 030
     Dates: start: 20080401, end: 20080801

REACTIONS (3)
  - MENORRHAGIA [None]
  - MENSTRUAL DISORDER [None]
  - METRORRHAGIA [None]
